FAERS Safety Report 4300001-8 (Version None)
Quarter: 2004Q1

REPORT INFORMATION
  Report Type: 
  Country: None (occurrence: None)
  Receive Date: 20040219
  Receipt Date: 20040219
  Transmission Date: 20041129
  Serious: Yes (Hospitalization)
  Sender: FDA-Public Use
  Company Number: None

PATIENT
  Age: 67 Year
  Sex: Male
  Weight: 88.905 kg

DRUGS (8)
  1. WARFARIN SODIUM [Suspect]
     Indication: DEEP VEIN THROMBOSIS
     Dosage: 1 PO QD, 2 PO WED
     Route: 048
  2. TACROLIMUS 1MG [Suspect]
     Indication: HEART TRANSPLANT
     Dosage: 2 PO QAM 1 PO QPM
     Route: 048
  3. ALLOPURINOL [Concomitant]
  4. CARVEDILOL [Concomitant]
  5. MMF [Concomitant]
  6. PREDNISONE [Concomitant]
  7. TERAZOSIN HCL [Concomitant]
  8. BACTRIM DS [Concomitant]

REACTIONS (3)
  - ASTHENIA [None]
  - CONFUSIONAL STATE [None]
  - WHITE BLOOD CELL COUNT DECREASED [None]
